FAERS Safety Report 10502779 (Version 2)
Quarter: 2015Q2

REPORT INFORMATION
  Report Type: Report from Study
  Country: CA (occurrence: CA)
  Receive Date: 20141007
  Receipt Date: 20150428
  Transmission Date: 20150821
  Serious: Yes (Other)
  Sender: FDA-Public Use
  Company Number: CA-JNJFOC-20140926653

PATIENT
  Age: 57 Year
  Sex: Female
  Weight: 79 kg

DRUGS (6)
  1. REMICADE [Suspect]
     Active Substance: INFLIXIMAB
     Indication: COLITIS ULCERATIVE
     Route: 042
     Dates: start: 20131002
  2. DEXILANT [Concomitant]
     Active Substance: DEXLANSOPRAZOLE
     Route: 065
  3. RANITIDINE [Concomitant]
     Active Substance: RANITIDINE\RANITIDINE HYDROCHLORIDE
     Route: 065
  4. CODEINE [Concomitant]
     Active Substance: CODEINE
     Route: 065
  5. REMICADE [Suspect]
     Active Substance: INFLIXIMAB
     Indication: COLITIS ULCERATIVE
     Route: 042
     Dates: start: 20140929
  6. ASACOL [Concomitant]
     Active Substance: MESALAMINE
     Route: 065

REACTIONS (12)
  - Abdominal pain upper [Unknown]
  - Restlessness [Unknown]
  - Dyspepsia [Unknown]
  - Gallbladder pain [Unknown]
  - Emotional distress [Unknown]
  - Painful respiration [Unknown]
  - Cold sweat [Unknown]
  - Hyperventilation [Unknown]
  - Blood pressure increased [Unknown]
  - Infusion related reaction [Unknown]
  - Back pain [Unknown]
  - Skin warm [Unknown]

NARRATIVE: CASE EVENT DATE: 20140929
